FAERS Safety Report 9366609 (Version 2)
Quarter: 2013Q2

REPORT INFORMATION
  Report Type: Spontaneous
  Country: FR (occurrence: None)
  Receive Date: 20130620
  Receipt Date: 20130628
  Transmission Date: 20140414
  Serious: Yes (Hospitalization)
  Sender: FDA-Public Use
  Company Number: 7216908

PATIENT
  Age: 63 Year
  Sex: Female

DRUGS (9)
  1. LEVOTHYROX [Suspect]
     Indication: PRODUCT USED FOR UNKNOWN INDICATION
     Route: 048
  2. ATARAX [Suspect]
     Indication: ANXIETY
     Dosage: 1 DF (1 DF, 1 IN 1 D)
     Route: 048
     Dates: start: 20130413, end: 20130413
  3. TEMODAL [Suspect]
     Indication: PRODUCT USED FOR UNKNOWN INDICATION
  4. ZOPHREN (ONDANSETRON HYDROCHLORIDE)(8 MG, TABLET)(ONDANSETRON HYDROCHLORIDE) [Concomitant]
  5. FUROSEMIDE (FUROSEMIDE)(40 MG)(FUROSEMIDE) [Concomitant]
  6. SPIRONOLACTONE (SPIRONOLACTONE)(75 MG)(SPIRONOLACTONE) [Concomitant]
  7. MICARDIS PLUS (PRITOR /01506701/)(HYDROCHLOROTHIAZIDE TELMISARTAN) [Concomitant]
  8. NIZORAL (KETOCONAZOLE)(200 MG)(KETOCONAZOLE) [Concomitant]
  9. DIFFU K (POTASSIUM CHLORIDE))POTASSIUM CHLORIDE) [Concomitant]

REACTIONS (6)
  - Confusional state [None]
  - Hallucination [None]
  - Agitation [None]
  - Disorientation [None]
  - Multi-organ failure [None]
  - Septic shock [None]
